FAERS Safety Report 7706931-9 (Version None)
Quarter: 2011Q3

REPORT INFORMATION
  Report Type: 
  Country: None (occurrence: None)
  Receive Date: 20110824
  Receipt Date: 20110818
  Transmission Date: 20111222
  Serious: Yes (Hospitalization, Disabling)
  Sender: FDA-Public Use
  Company Number: BE-GLAXOSMITHKLINE-B0737143A

PATIENT
  Sex: Male

DRUGS (5)
  1. BISOPROLOL FUMARATE AND HYDROCHLOROTHIAZIDE [Concomitant]
     Indication: HYPERTENSION
     Dosage: 1TAB IN THE MORNING
  2. ASAFLOW [Concomitant]
     Indication: PROPHYLAXIS
     Dosage: 80MG PER DAY
  3. OMEPRAZOLE [Concomitant]
     Indication: GASTRITIS
     Dosage: 40MG PER DAY
  4. LAMICTAL [Suspect]
     Indication: EPILEPSY
     Route: 065
     Dates: start: 20061101
  5. FEXOFENADINE HCL [Concomitant]
     Indication: HYPERSENSITIVITY
     Dosage: 1TAB IN THE MORNING

REACTIONS (2)
  - ATRIAL FIBRILLATION [None]
  - INAPPROPRIATE SCHEDULE OF DRUG ADMINISTRATION [None]
